FAERS Safety Report 16561549 (Version 2)
Quarter: 2019Q3

REPORT INFORMATION
  Report Type: Spontaneous
  Country: TR (occurrence: TR)
  Receive Date: 20190711
  Receipt Date: 20190726
  Transmission Date: 20191004
  Serious: Yes (Other)
  Sender: FDA-Public Use
  Company Number: TR-PFIZER INC-2019296416

PATIENT
  Age: 66 Year
  Sex: Female

DRUGS (15)
  1. RITUXIMAB. [Suspect]
     Active Substance: RITUXIMAB
     Indication: NODAL MARGINAL ZONE B-CELL LYMPHOMA
  2. VINCRISTINE SULFATE. [Suspect]
     Active Substance: VINCRISTINE SULFATE
     Indication: INVASIVE DUCTAL BREAST CARCINOMA
     Dosage: 1.4 MG/M2, CYCLIC, (SECOND DAY)
  3. RITUXIMAB. [Suspect]
     Active Substance: RITUXIMAB
     Indication: INVASIVE DUCTAL BREAST CARCINOMA
     Dosage: 375 MG/M2, CYCLIC, (FIRST DAY)
  4. DOXORUBICIN [Suspect]
     Active Substance: DOXORUBICIN
     Indication: INVASIVE DUCTAL BREAST CARCINOMA
     Dosage: 50 MG/M2, CYCLIC, (SECOND DAY)
  5. DOXORUBICIN [Suspect]
     Active Substance: DOXORUBICIN
     Indication: NODAL MARGINAL ZONE B-CELL LYMPHOMA
  6. CYCLOPHOSPHAMIDE. [Suspect]
     Active Substance: CYCLOPHOSPHAMIDE
     Indication: INVASIVE DUCTAL BREAST CARCINOMA
     Dosage: 750 MG/M2, CYCLIC, (SECOND DAY)
  7. PREDNISONE. [Suspect]
     Active Substance: PREDNISONE
     Indication: INVASIVE DUCTAL BREAST CARCINOMA
     Dosage: 40 MG/M2, CYCLIC, (SECOND DAY)
  8. PREDNISONE. [Suspect]
     Active Substance: PREDNISONE
     Indication: NODAL MARGINAL ZONE B-CELL LYMPHOMA
  9. CYCLOPHOSPHAMIDE. [Suspect]
     Active Substance: CYCLOPHOSPHAMIDE
     Indication: NODAL MARGINAL ZONE B-CELL LYMPHOMA
  10. DOXORUBICIN [Suspect]
     Active Substance: DOXORUBICIN
     Indication: METASTASES TO BREAST
     Dosage: 60 MG/M2, CYCLIC (FIRST DAY)
  11. PREDNISONE. [Suspect]
     Active Substance: PREDNISONE
     Indication: METASTASES TO BREAST
  12. VINCRISTINE SULFATE. [Suspect]
     Active Substance: VINCRISTINE SULFATE
     Indication: METASTASES TO BREAST
  13. VINCRISTINE SULFATE. [Suspect]
     Active Substance: VINCRISTINE SULFATE
     Indication: NODAL MARGINAL ZONE B-CELL LYMPHOMA
  14. RITUXIMAB. [Suspect]
     Active Substance: RITUXIMAB
     Indication: METASTASES TO BREAST
  15. CYCLOPHOSPHAMIDE. [Suspect]
     Active Substance: CYCLOPHOSPHAMIDE
     Indication: METASTASES TO BREAST
     Dosage: 600 MG/M2, CYCLIC (FIRST DAY)

REACTIONS (5)
  - Diarrhoea [Unknown]
  - Haematotoxicity [Unknown]
  - Mucosal inflammation [Unknown]
  - Nausea [Unknown]
  - Vomiting [Unknown]
